FAERS Safety Report 6096973-4 (Version None)
Quarter: 2009Q1

REPORT INFORMATION
  Report Type: 
  Country: None (occurrence: None)
  Receive Date: 20090227
  Receipt Date: 20090217
  Transmission Date: 20090719
  Serious: Yes (Hospitalization)
  Sender: FDA-Public Use
  Company Number: BE-PFIZER INC-2008051247

PATIENT

DRUGS (3)
  1. SUNITINIB MALATE [Suspect]
     Indication: BREAST CANCER
     Dosage: 37.5 MG, 1X/DAY
     Route: 048
     Dates: start: 20080409
  2. DOCETAXEL [Suspect]
     Indication: BREAST CANCER
     Dosage: 145 MG, EVERY 3 WEEKS
     Route: 042
     Dates: start: 20080408
  3. DEXAMETHASONE [Concomitant]
     Route: 048
     Dates: start: 20080609, end: 20080611

REACTIONS (2)
  - ERYTHEMA [None]
  - SKIN DISORDER [None]
